FAERS Safety Report 8261764-2 (Version None)
Quarter: 2012Q2

REPORT INFORMATION
  Report Type: 
  Country: None (occurrence: None)
  Receive Date: 20120405
  Receipt Date: 20120330
  Transmission Date: 20120825
  Serious: No
  Sender: FDA-Public Use
  Company Number: US-PFIZER INC-2012082167

PATIENT
  Sex: Male
  Weight: 68.027 kg

DRUGS (4)
  1. NEURONTIN [Suspect]
     Dosage: 800 MG, 5X/DAY
     Route: 048
  2. TRAZODONE [Concomitant]
     Indication: SLEEP DISORDER
     Dosage: UNK, 1X/DAY
  3. NEURONTIN [Suspect]
     Indication: PAIN
     Dosage: 800 MG, 2X/DAY
     Route: 048
     Dates: start: 20020101
  4. RANITIDINE [Concomitant]
     Dosage: UNK, 1X/DAY

REACTIONS (2)
  - GASTRIC DISORDER [None]
  - DRUG INEFFECTIVE [None]
